FAERS Safety Report 7286030-3 (Version None)
Quarter: 2011Q1

REPORT INFORMATION
  Report Type: 
  Country: None (occurrence: None)
  Receive Date: 20110210
  Receipt Date: 20110106
  Transmission Date: 20110831
  Serious: Yes (Hospitalization)
  Sender: FDA-Public Use
  Company Number: US-BAYER-201035758NA

PATIENT
  Sex: Female
  Weight: 74.83 kg

DRUGS (4)
  1. YASMIN [Suspect]
     Indication: PRODUCT USED FOR UNKNOWN INDICATION
     Route: 048
     Dates: start: 20010101, end: 20040120
  2. METFORMIN [Concomitant]
     Indication: POLYCYSTIC OVARIES
  3. ADVIL LIQUI-GELS [Concomitant]
  4. METFORMIN [Concomitant]
     Indication: INSULIN RESISTANCE
     Dosage: UNK
     Dates: start: 20040101

REACTIONS (2)
  - PULMONARY EMBOLISM [None]
  - DEEP VEIN THROMBOSIS [None]
